FAERS Safety Report 14873075 (Version 2)
Quarter: 2018Q2

REPORT INFORMATION
  Report Type: Spontaneous
  Country: BE (occurrence: BE)
  Receive Date: 20180510
  Receipt Date: 20180627
  Transmission Date: 20180711
  Serious: Yes (Hospitalization, Other)
  Sender: FDA-Public Use
  Company Number: BE-ASTELLAS-2018US021607

PATIENT
  Age: 29 Year
  Sex: Female

DRUGS (3)
  1. PROGRAFT [Suspect]
     Active Substance: TACROLIMUS
     Indication: RENAL TRANSPLANT
     Route: 065
     Dates: start: 2003, end: 201804
  2. PROGRAFT [Suspect]
     Active Substance: TACROLIMUS
     Dosage: 0.5 MG, TWICE DAILY
     Route: 065
     Dates: start: 201804
  3. PROGRAFT [Suspect]
     Active Substance: TACROLIMUS
     Dosage: 1.5 MG, DAILY (1 MG MORNING, 0.5 MG EVENING)
     Route: 065
     Dates: start: 201804, end: 201804

REACTIONS (5)
  - Headache [Unknown]
  - Renal impairment [Unknown]
  - Hypertension [Recovered/Resolved]
  - Papilloedema [Recovering/Resolving]
  - Optic atrophy [Unknown]

NARRATIVE: CASE EVENT DATE: 2018
